FAERS Safety Report 13353783 (Version 2)
Quarter: 2017Q2

REPORT INFORMATION
  Report Type: Spontaneous
  Country: US (occurrence: US)
  Receive Date: 20170321
  Receipt Date: 20170410
  Transmission Date: 20170830
  Serious: Yes (Disabling, Other)
  Sender: FDA-Public Use
  Company Number: US-009507513-1703USA008734

PATIENT
  Age: 88 Year
  Sex: Male

DRUGS (2)
  1. KEYTRUDA [Suspect]
     Active Substance: PEMBROLIZUMAB
     Indication: METASTATIC MALIGNANT MELANOMA
     Dosage: 200 MG (2 VIALS), THE FIRST DOSE
     Route: 042
     Dates: start: 20170124, end: 20170124
  2. KEYTRUDA [Suspect]
     Active Substance: PEMBROLIZUMAB
     Dosage: 200 MG (2 VIALS), THE SECOND DOSE
     Route: 042
     Dates: start: 20170228, end: 20170228

REACTIONS (5)
  - Aspiration [Unknown]
  - Cough [Unknown]
  - Wheelchair user [Not Recovered/Not Resolved]
  - General physical health deterioration [Unknown]
  - Fatigue [Not Recovered/Not Resolved]

NARRATIVE: CASE EVENT DATE: 2017
